FAERS Safety Report 10251302 (Version 1)
Quarter: 2014Q2

REPORT INFORMATION
  Report Type: Spontaneous
  Country: DE (occurrence: DE)
  Receive Date: 20140621
  Receipt Date: 20140621
  Transmission Date: 20141212
  Serious: Yes (Other)
  Sender: FDA-Public Use
  Company Number: DE-MERCK-1406DEU010222

PATIENT
  Sex: 0

DRUGS (3)
  1. RIBAVIRIN [Suspect]
     Indication: HEPATITIS C
     Dosage: 800-1200 MG/DAY
     Dates: start: 1997
  2. INTERFERON (UNSPECIFIED) [Suspect]
     Indication: HEPATITIS C
     Dosage: 3 MILLION IU, Q3W
     Dates: start: 1993
  3. INTERFERON (UNSPECIFIED) [Suspect]
     Dosage: UNK
     Dates: start: 1997

REACTIONS (2)
  - Liver transplant [Unknown]
  - Drug ineffective [Unknown]
